FAERS Safety Report 14691225 (Version 1)
Quarter: 2018Q1

REPORT INFORMATION
  Report Type: Spontaneous
  Country: US (occurrence: US)
  Receive Date: 20180328
  Receipt Date: 20180328
  Transmission Date: 20180509
  Serious: No
  Sender: FDA-Public Use
  Company Number: US-ELI_LILLY_AND_COMPANY-US201803010358

PATIENT
  Sex: Male

DRUGS (6)
  1. TRULICITY [Suspect]
     Active Substance: DULAGLUTIDE
     Indication: PRODUCT USED FOR UNKNOWN INDICATION
     Dosage: 1.5 MG, WEEKLY (1/W)
     Route: 058
  2. LANTUS [Concomitant]
     Active Substance: INSULIN GLARGINE
     Dosage: 18 U, SATURDAY, SUNDAY, MONDAY
  3. LANTUS [Concomitant]
     Active Substance: INSULIN GLARGINE
     Dosage: 30 U, THURSDAY
  4. LANTUS [Concomitant]
     Active Substance: INSULIN GLARGINE
     Dosage: 34 U, FRIDAY
  5. LANTUS [Concomitant]
     Active Substance: INSULIN GLARGINE
     Dosage: 22 U, TUESDAY
  6. LANTUS [Concomitant]
     Active Substance: INSULIN GLARGINE
     Dosage: 26 U, WEDNESDAY

REACTIONS (1)
  - Blood glucose increased [Unknown]
